FAERS Safety Report 23953111 (Version 1)
Quarter: 2024Q2

REPORT INFORMATION
  Report Type: Spontaneous
  Country: CY (occurrence: CY)
  Receive Date: 20240608
  Receipt Date: 20240608
  Transmission Date: 20240716
  Serious: Yes (Hospitalization)
  Sender: FDA-Public Use
  Company Number: CY-002147023-NVSC2024CY115112

PATIENT
  Age: 50 Year
  Sex: Male

DRUGS (1)
  1. XOLAIR [Suspect]
     Active Substance: OMALIZUMAB
     Indication: Chronic spontaneous urticaria
     Dosage: UNK
     Route: 065

REACTIONS (2)
  - Condition aggravated [Unknown]
  - Drug ineffective [Unknown]
